FAERS Safety Report 6448261-1 (Version None)
Quarter: 2009Q4

REPORT INFORMATION
  Report Type: 
  Country: None (occurrence: None)
  Receive Date: 20091117
  Receipt Date: 20091110
  Transmission Date: 20100525
  Serious: Yes (Death, Other)
  Sender: FDA-Public Use
  Company Number: 2009SP034680

PATIENT
  Age: 61 Year
  Sex: Male

DRUGS (1)
  1. ONCOTICE [Suspect]
     Indication: TRANSITIONAL CELL CARCINOMA
     Dosage: ; URH
     Route: 066
     Dates: start: 20090907

REACTIONS (4)
  - BOVINE TUBERCULOSIS [None]
  - FIBRINOLYSIS [None]
  - MULTI-ORGAN FAILURE [None]
  - SEPTIC SHOCK [None]
